FAERS Safety Report 7207496-0 (Version None)
Quarter: 2011Q1

REPORT INFORMATION
  Report Type: 
  Country: None (occurrence: None)
  Receive Date: 20110103
  Receipt Date: 20101229
  Transmission Date: 20110831
  Serious: Yes (Death, Hospitalization)
  Sender: FDA-Public Use
  Company Number: US-ABBOTT-10P-163-0694454-00

PATIENT
  Sex: Male
  Weight: 64.922 kg

DRUGS (4)
  1. HUMIRA [Suspect]
     Indication: CROHN'S DISEASE
     Dates: start: 20100901, end: 20100901
  2. LYRICA [Concomitant]
     Indication: PRODUCT USED FOR UNKNOWN INDICATION
     Dates: end: 20101221
  3. PENTAZA [Concomitant]
     Indication: CROHN'S DISEASE
     Dates: end: 20101221
  4. WARFARIN [Concomitant]
     Indication: PULMONARY EMBOLISM
     Dates: start: 20000101, end: 20101221

REACTIONS (5)
  - COLITIS [None]
  - STAPHYLOCOCCAL INFECTION [None]
  - ASTHENIA [None]
  - PNEUMONIA [None]
  - CLOSTRIDIAL INFECTION [None]
